FAERS Safety Report 12369976 (Version 1)
Quarter: 2016Q2

REPORT INFORMATION
  Report Type: Spontaneous
  Country: US (occurrence: None)
  Receive Date: 20160513
  Receipt Date: 20160513
  Transmission Date: 20160815
  Serious: Yes (Life-Threatening)
  Sender: FDA-Public Use
  Company Number: None

PATIENT
  Sex: Female

DRUGS (6)
  1. BABY ASPIRIN [Suspect]
     Active Substance: ASPIRIN
  2. SIMVASTATIN. [Concomitant]
     Active Substance: SIMVASTATIN
  3. PROTONIX [Concomitant]
     Active Substance: PANTOPRAZOLE SODIUM
  4. MULTIVITAMINS [Suspect]
     Active Substance: VITAMINS
  5. CELEBREX [Suspect]
     Active Substance: CELECOXIB
     Indication: KNEE OPERATION
     Route: 048
  6. LISINOPRIL. [Concomitant]
     Active Substance: LISINOPRIL

REACTIONS (5)
  - Diarrhoea [None]
  - Ulcer haemorrhage [None]
  - Faeces discoloured [None]
  - Dizziness [None]
  - Malaise [None]
